FAERS Safety Report 19506132 (Version 1)
Quarter: 2021Q3

REPORT INFORMATION
  Report Type: Spontaneous
  Country: DE (occurrence: DE)
  Receive Date: 20210708
  Receipt Date: 20210708
  Transmission Date: 20211014
  Serious: Yes (Hospitalization)
  Sender: FDA-Public Use
  Company Number: DE-ORGANON-O2107DEU000093

PATIENT
  Age: 85 Year
  Sex: Female
  Weight: 59 kg

DRUGS (6)
  1. MIRTAZAPINE. [Suspect]
     Active Substance: MIRTAZAPINE
     Dosage: (15 MG, 0?0?1?0, TABLET)
     Route: 048
  2. PANTOPRAZOLE [Concomitant]
     Active Substance: PANTOPRAZOLE
     Dosage: UNK (40 MG, 1?0?0?0, RETARD?TABLET)
     Route: 048
  3. NALOXONE HYDROCHLORIDE;OXYCODONE HYDROCHLORIDE [Suspect]
     Active Substance: NALOXONE HYDROCHLORIDE\OXYCODONE HYDROCHLORIDE
     Dosage: (10|20 MG, 1?0.5?1?1, RETARD?TABLET)
     Route: 048
  4. MORPHINE [Concomitant]
     Active Substance: MORPHINE
     Dosage: (3 MG, NEED, DROPS)
     Route: 048
  5. LEVOTHYROXINE SODIUM. [Concomitant]
     Active Substance: LEVOTHYROXINE SODIUM
     Dosage: (125 MICROGRAM, 1?0?0?0, TABLET)
     Route: 048
  6. PREGABALIN. [Concomitant]
     Active Substance: PREGABALIN
     Dosage: (100 MG, 0?0?1?0, CAPSULES)
     Route: 048

REACTIONS (4)
  - Fall [Unknown]
  - Medication error [Unknown]
  - Tinnitus [Unknown]
  - Dizziness [Unknown]
